FAERS Safety Report 5897343-1 (Version None)
Quarter: 2008Q3

REPORT INFORMATION
  Report Type: 
  Country: None (occurrence: None)
  Receive Date: 20080925
  Receipt Date: 20080103
  Transmission Date: 20090109
  Serious: No
  Sender: FDA-Public Use
  Company Number: A0701212A

PATIENT
  Age: 41 Year
  Sex: Male

DRUGS (6)
  1. EPZICOM [Suspect]
     Indication: HIV INFECTION
     Dosage: 2TAB TWICE PER DAY
     Route: 048
     Dates: start: 20071223
  2. LEXIVA [Suspect]
     Indication: HIV INFECTION
     Dosage: 1400MG TWICE PER DAY
     Route: 048
     Dates: start: 20071223
  3. BACTRIM DS [Suspect]
     Dosage: 1TAB TWICE PER DAY
     Dates: start: 20071221
  4. GANCICLOVIR [Concomitant]
     Route: 042
  5. UNKNOWN MEDICATION [Concomitant]
  6. AZITHROMYCIN [Concomitant]

REACTIONS (3)
  - PRURITUS [None]
  - RASH [None]
  - RASH PAPULAR [None]
